FAERS Safety Report 7409431-9 (Version None)
Quarter: 2011Q2

REPORT INFORMATION
  Report Type: 
  Country: None (occurrence: None)
  Receive Date: 20110412
  Receipt Date: 20110404
  Transmission Date: 20111010
  Serious: Yes (Death)
  Sender: FDA-Public Use
  Company Number: PHHY2009JP58971

PATIENT
  Sex: Male
  Weight: 83 kg

DRUGS (9)
  1. RED BLOOD CELLS, LEUCOCYTE DEPLETED [Concomitant]
     Indication: MYELODYSPLASTIC SYNDROME
     Dosage: 4 UNITS EVERY WEEK
     Dates: start: 20090323, end: 20090514
  2. DIGOXIN [Concomitant]
     Dosage: 0.125 MG, UNK
     Route: 048
     Dates: start: 20090315, end: 20090920
  3. EXJADE [Suspect]
     Indication: MYELODYSPLASTIC SYNDROME
     Dosage: 1000 MG DAILY
     Route: 048
     Dates: start: 20090508, end: 20090918
  4. ALDACTONE [Concomitant]
     Dosage: 25 MG, UNK
     Route: 048
     Dates: start: 20090306, end: 20090918
  5. LASIX [Concomitant]
     Dosage: 60 MG, UNK
     Route: 048
     Dates: start: 20090315, end: 20090918
  6. PRIMOBOLAN [Concomitant]
     Dosage: 20 MG, UNK
     Route: 048
     Dates: start: 20090306, end: 20090918
  7. EXJADE [Suspect]
     Indication: IRON OVERLOAD
     Dosage: 500 MG DAILY
     Route: 048
     Dates: start: 20090306, end: 20090507
  8. NEORAL [Suspect]
     Indication: MYELODYSPLASTIC SYNDROME
     Dosage: 75 MG DAILY
     Route: 048
     Dates: end: 20090611
  9. RED BLOOD CELLS, LEUCOCYTE DEPLETED [Concomitant]
     Dosage: 2 UNITS EVERY WEEK
     Dates: start: 20090521, end: 20090919

REACTIONS (4)
  - BLOOD LACTATE DEHYDROGENASE INCREASED [None]
  - NEOPLASM MALIGNANT [None]
  - LEUKAEMIA [None]
  - RENAL DISORDER [None]
